FAERS Safety Report 7531612-4 (Version None)
Quarter: 2011Q2

REPORT INFORMATION
  Report Type: 
  Country: None (occurrence: None)
  Receive Date: 20110607
  Receipt Date: 20110607
  Transmission Date: 20111010
  Serious: Yes (Other)
  Sender: FDA-Public Use
  Company Number: None

PATIENT
  Age: 19 Year
  Sex: Female

DRUGS (2)
  1. BUPIVACAINE HYDROCHLORIDE [Suspect]
     Indication: SPINAL ANAESTHESIA
     Dosage: ONCE IT
  2. BUPIVACAINE HYDROCHLORIDE [Suspect]
     Indication: CAESAREAN SECTION
     Dosage: ONCE IT

REACTIONS (3)
  - DRUG INEFFECTIVE [None]
  - PRODUCT QUALITY ISSUE [None]
  - ASTHENIA [None]
